FAERS Safety Report 6423605-5 (Version None)
Quarter: 2009Q4

REPORT INFORMATION
  Report Type: 
  Country: None (occurrence: None)
  Receive Date: 20091102
  Receipt Date: 20091023
  Transmission Date: 20100525
  Serious: Yes (Hospitalization)
  Sender: FDA-Public Use
  Company Number: KR-JNJFOC-20091006512

PATIENT
  Age: 38 Year
  Sex: Male

DRUGS (1)
  1. INFLIXIMAB [Suspect]
     Indication: CROHN'S DISEASE
     Dosage: AT BASELINE, 2 AND 6 WEEKS
     Route: 042

REACTIONS (3)
  - DISSEMINATED TUBERCULOSIS [None]
  - IMMUNE RECONSTITUTION SYNDROME [None]
  - PARADOXICAL DRUG REACTION [None]
